FAERS Safety Report 19107324 (Version 4)
Quarter: 2024Q4

REPORT INFORMATION
  Report Type: Spontaneous
  Country: FI (occurrence: FI)
  Receive Date: 20210408
  Receipt Date: 20241014
  Transmission Date: 20250115
  Serious: Yes (Death, Other)
  Sender: ASTELLAS
  Company Number: FI-EMA-DD-20210322-JAIN_H1-103937

PATIENT
  Age: 14 Year
  Sex: Female

DRUGS (33)
  1. AMBISOME [Suspect]
     Active Substance: AMPHOTERICIN B
     Indication: Antifungal prophylaxis
     Dosage: 5 MG/KG, ONCE DAILY (ON DAY 18)
     Route: 042
  2. AMBISOME [Suspect]
     Active Substance: AMPHOTERICIN B
     Indication: Evidence based treatment
  3. FLUCONAZOLE [Suspect]
     Active Substance: FLUCONAZOLE
     Indication: Antifungal prophylaxis
     Route: 065
  4. FLUCONAZOLE [Suspect]
     Active Substance: FLUCONAZOLE
     Dosage: UNK UNK, UNKNOWN FREQ.
     Route: 065
  5. MYCOPHENOLATE MOFETIL [Suspect]
     Active Substance: MYCOPHENOLATE MOFETIL
     Indication: Prophylaxis against graft versus host disease
     Dosage: UNK UNK, UNKNOWN FREQ. (SHORT COURCE)
     Route: 065
  6. CYCLOPHOSPHAMIDE [Suspect]
     Active Substance: CYCLOPHOSPHAMIDE
     Indication: Bone marrow conditioning regimen
     Dosage: UNK UNK, UNKNOWN FREQ.
     Route: 065
  7. CYCLOPHOSPHAMIDE [Suspect]
     Active Substance: CYCLOPHOSPHAMIDE
     Indication: Pyrexia
     Dosage: UNK UNK, UNKNOWN FREQ.
     Route: 065
  8. VORICONAZOLE [Suspect]
     Active Substance: VORICONAZOLE
     Indication: Antifungal prophylaxis
     Dosage: 14 MG/KG, ONCE DAILY (ADDED ON DAY 17)
     Route: 042
  9. VANCOMYCIN [Suspect]
     Active Substance: VANCOMYCIN
     Indication: Ophthalmic herpes zoster
     Dosage: UNK UNK, UNKNOWN FREQ.
     Route: 065
  10. TEICOPLANIN [Suspect]
     Active Substance: TEICOPLANIN
     Indication: Ophthalmic herpes zoster
     Dosage: UNK UNK, UNKNOWN FREQ.
     Route: 065
  11. ETOPOSIDE [Suspect]
     Active Substance: ETOPOSIDE
     Indication: Bone marrow conditioning regimen
     Dosage: UNK UNK, UNKNOWN FREQ.
     Route: 065
  12. ETOPOSIDE [Suspect]
     Active Substance: ETOPOSIDE
     Indication: Pyrexia
  13. METHOTREXATE [Suspect]
     Active Substance: METHOTREXATE
     Indication: Prophylaxis against graft versus host disease
     Dosage: UNK UNK, UNKNOWN FREQ. (SHORT COURCE))
     Route: 065
  14. AZTREONAM [Suspect]
     Active Substance: AZTREONAM
     Indication: Product used for unknown indication
     Dosage: UNK UNK, UNKNOWN FREQ.
     Route: 065
  15. CEFTAZIDIME [Suspect]
     Active Substance: CEFTAZIDIME
     Indication: Ophthalmic herpes zoster
     Dosage: UNK UNK, UNKNOWN FREQ.
     Route: 065
  16. CEFTAZIDIME [Suspect]
     Active Substance: CEFTAZIDIME
     Dosage: UNK UNK, UNKNOWN FREQ.
     Route: 065
  17. ACYCLOVIR [Suspect]
     Active Substance: ACYCLOVIR
     Indication: Ophthalmic herpes zoster
     Dosage: UNK UNK, UNKNOWN FREQ.
     Route: 065
  18. NETILMICIN SULFATE [Suspect]
     Active Substance: NETILMICIN SULFATE
     Indication: Ophthalmic herpes zoster
     Dosage: UNK UNK, UNKNOWN FREQ.
     Route: 065
  19. GANCICLOVIR [Suspect]
     Active Substance: GANCICLOVIR
     Indication: Ophthalmic herpes zoster
     Dosage: UNK UNK, UNKNOWN FREQ.
     Route: 065
  20. CLINDAMYCIN [Suspect]
     Active Substance: CLINDAMYCIN
     Indication: C-reactive protein increased
     Dosage: UNK UNK, UNKNOWN FREQ.
     Route: 065
  21. CLINDAMYCIN [Suspect]
     Active Substance: CLINDAMYCIN
     Indication: Pyrexia
  22. MEROPENEM [Suspect]
     Active Substance: MEROPENEM
     Indication: Pyrexia
     Dosage: UNK UNK, UNKNOWN FREQ.
     Route: 065
  23. MEROPENEM [Suspect]
     Active Substance: MEROPENEM
     Indication: C-reactive protein increased
  24. CASPOFUNGIN [Suspect]
     Active Substance: CASPOFUNGIN
     Indication: Antifungal prophylaxis
     Dosage: 50 MG/M2, ONCE DAILY (FROM DAY 4 TO DAY 17)
     Route: 042
  25. CASPOFUNGIN [Suspect]
     Active Substance: CASPOFUNGIN
     Indication: Evidence based treatment
     Dosage: 50 MG/M2, QD (50 MG/M2/DAY IV FROM DAY 4 TO DAY 17)
     Route: 042
  26. DOXORUBICIN HYDROCHLORIDE [Suspect]
     Active Substance: DOXORUBICIN HYDROCHLORIDE
     Indication: Antifungal prophylaxis
     Dosage: 5 MG/KG, QD (5 MG/KG/DAY I.V. ON DAY 18)
     Route: 042
  27. NETILMICIN [Suspect]
     Active Substance: NETILMICIN
     Indication: Ophthalmic herpes zoster
     Route: 065
  28. DOBUTAMINE [Suspect]
     Active Substance: DOBUTAMINE HYDROCHLORIDE
     Indication: Hypotension
     Dosage: UNK UNK, UNKNOWN FREQ.
     Route: 065
  29. DOBUTAMINE [Suspect]
     Active Substance: DOBUTAMINE HYDROCHLORIDE
     Indication: C-reactive protein increased
  30. NOREPINEPHRINE [Suspect]
     Active Substance: NOREPINEPHRINE\NOREPINEPHRINE BITARTRATE
     Indication: Hypotension
     Dosage: UNK UNK, UNKNOWN FREQ.
     Route: 065
  31. NOREPINEPHRINE [Suspect]
     Active Substance: NOREPINEPHRINE\NOREPINEPHRINE BITARTRATE
     Dosage: UNK UNK, UNKNOWN FREQ.
     Route: 065
  32. NOREPINEPHRINE [Suspect]
     Active Substance: NOREPINEPHRINE\NOREPINEPHRINE BITARTRATE
     Dosage: UNK UNK, UNKNOWN FREQ.
     Route: 065
  33. NOREPINEPHRINE [Suspect]
     Active Substance: NOREPINEPHRINE\NOREPINEPHRINE BITARTRATE
     Dosage: UNK UNK, UNKNOWN FREQ.
     Route: 065

REACTIONS (13)
  - Mucormycosis [Fatal]
  - Fungal sepsis [Fatal]
  - Shock [Fatal]
  - Disseminated mucormycosis [Fatal]
  - Drug ineffective for unapproved indication [Fatal]
  - Neutropenia [Not Recovered/Not Resolved]
  - Renal impairment [Recovering/Resolving]
  - C-reactive protein increased [Unknown]
  - Skin disorder [Unknown]
  - Skin exfoliation [Unknown]
  - Pyrexia [Unknown]
  - Skin disorder [Unknown]
  - Off label use [Recovered/Resolved]
